FAERS Safety Report 11242765 (Version 1)
Quarter: 2015Q3

REPORT INFORMATION
  Report Type: Spontaneous
  Country: US (occurrence: None)
  Receive Date: 20150701
  Receipt Date: 20150701
  Transmission Date: 20151125
  Serious: No
  Sender: FDA-Public Use
  Company Number: None

PATIENT
  Age: 57 Year
  Sex: Male
  Weight: 145 kg

DRUGS (1)
  1. TRAMADOL. [Suspect]
     Active Substance: TRAMADOL
     Indication: PAIN
     Dosage: 100 MG  UD  PO
     Route: 048
     Dates: start: 20150304, end: 20150408

REACTIONS (3)
  - Pain [None]
  - Diarrhoea [None]
  - Haemorrhoids [None]

NARRATIVE: CASE EVENT DATE: 20150408
